FAERS Safety Report 5365604-0 (Version None)
Quarter: 2007Q2

REPORT INFORMATION
  Report Type: 
  Country: None (occurrence: None)
  Receive Date: 20070621
  Receipt Date: 20070618
  Transmission Date: 20071010
  Serious: Yes (Hospitalization)
  Sender: FDA-Public Use
  Company Number: US-BRISTOL-MYERS SQUIBB COMPANY-13818562

PATIENT
  Age: 59 Year
  Sex: Male

DRUGS (3)
  1. DEPAKOTE [Suspect]
     Route: 048
     Dates: start: 20070524, end: 20070615
  2. METFORMIN HCL [Concomitant]
     Dates: start: 20070509, end: 20070615
  3. LORAZEPAM [Concomitant]
     Dates: start: 20070529, end: 20070615

REACTIONS (1)
  - MANIA [None]
